FAERS Safety Report 19182903 (Version 1)
Quarter: 2021Q2

REPORT INFORMATION
  Report Type: Other
  Country: IN (occurrence: IN)
  Receive Date: 20210426
  Receipt Date: 20210426
  Transmission Date: 20210717
  Serious: Yes (Death, Other)
  Sender: FDA-Public Use
  Company Number: IN-ROCHE-2814360

PATIENT

DRUGS (7)
  1. RITUXIMAB. [Suspect]
     Active Substance: RITUXIMAB
     Indication: IMMUNE TOLERANCE INDUCTION
     Dosage: UP TO 500 MG I.E. WEEKLY FOR 4 WEEKS
     Route: 042
  2. METHYLPREDNISOLONE. [Suspect]
     Active Substance: METHYLPREDNISOLONE
     Indication: PROPHYLAXIS AGAINST TRANSPLANT REJECTION
     Dosage: DOSE OF 20 MG/KG UP TO 1 GM IN DIVIDED DOSES
     Route: 042
  3. EVEROLIMUS. [Suspect]
     Active Substance: EVEROLIMUS
     Indication: VASCULAR GRAFT COMPLICATION
     Dosage: DOSES OF 0.5E0.75 MG TO MAINTAIN A TROUGH LEVEL OF 3E8 NG/ML
     Route: 065
  4. TACROLIMUS. [Suspect]
     Active Substance: TACROLIMUS
     Indication: PROPHYLAXIS AGAINST TRANSPLANT REJECTION
     Dosage: 0.5?1 MG
     Route: 048
  5. MYCOPHENOLATE MOFETIL. [Suspect]
     Active Substance: MYCOPHENOLATE MOFETIL
     Indication: PROPHYLAXIS AGAINST TRANSPLANT REJECTION
     Dosage: 10?20 MG/KG/DOSE UP TO A DOSE OF 600 MG/M2
     Route: 065
  6. BASILIXIMAB [Suspect]
     Active Substance: BASILIXIMAB
     Indication: PROPHYLAXIS AGAINST TRANSPLANT REJECTION
     Dosage: 10?20 MG OVER 30 MIN
     Route: 042
  7. PREDNISOLONE. [Suspect]
     Active Substance: PREDNISOLONE
     Indication: PROPHYLAXIS AGAINST TRANSPLANT REJECTION
     Route: 048

REACTIONS (7)
  - Tuberculosis [Fatal]
  - Non-Hodgkin^s lymphoma [Unknown]
  - Cytomegalovirus infection [Fatal]
  - Opportunistic infection [Fatal]
  - Neoplasm malignant [Unknown]
  - Breast cancer recurrent [Unknown]
  - Sepsis [Fatal]
